FAERS Safety Report 4997795-5 (Version None)
Quarter: 2006Q2

REPORT INFORMATION
  Report Type: 
  Country: None (occurrence: None)
  Receive Date: 20060508
  Receipt Date: 20060424
  Transmission Date: 20061013
  Serious: Yes (Other)
  Sender: FDA-Public Use
  Company Number: 2006055500

PATIENT
  Sex: Male

DRUGS (6)
  1. GABAPENTIN [Suspect]
     Indication: BACK PAIN
  2. ASPIRIN [Concomitant]
  3. MULTIVITAMIN [Concomitant]
  4. VITAMIN C (VITAMIN C) [Concomitant]
  5. TRAMADOL HCL [Concomitant]
  6. VICODIN [Concomitant]

REACTIONS (3)
  - DYSPHONIA [None]
  - FACIAL PALSY [None]
  - PHARYNGEAL OEDEMA [None]
